FAERS Safety Report 8170820 (Version 2)
Quarter: 2012Q4

REPORT INFORMATION
  Report Type: 
  Country: US (occurrence: None)
  Receive Date: 20110927
  Receipt Date: 20121023
  Transmission Date: 20130627
  Serious: Yes (Death, Hospitalization, Other)
  Sender: FDA-Public Use
  Company Number: AUR-APL-2011-05083

PATIENT
  Age: 51 Year
  Sex: Female

DRUGS (2)
  1. CARISOPRODOL [Suspect]
     Indication: PRODUCT USED FOR UNKNOWN INDICATION
  2. CLONAZEPAM (CLONAZEPAM) (CLONAZEPAM) [Suspect]
     Indication: PRODUCT USED FOR UNKNOWN INDICATION

REACTIONS (21)
  - Peritoneal adhesions [None]
  - Pelvic haemorrhage [None]
  - Bronchopneumonia [None]
  - Hepatic fibrosis [None]
  - Urinary bladder haemorrhage [None]
  - Intentional overdose [None]
  - Glucose urine present [None]
  - Urinary sediment present [None]
  - Unresponsive to stimuli [None]
  - Pneumonia aspiration [None]
  - Tachypnoea [None]
  - Hyperhidrosis [None]
  - General physical health deterioration [None]
  - Urinary bladder rupture [None]
  - Soft tissue haemorrhage [None]
  - Pain [None]
  - Toxicity to various agents [None]
  - Pulmonary oedema [None]
  - Hepatomegaly [None]
  - Urinary casts present [None]
  - Cardio-respiratory arrest [None]
